FAERS Safety Report 12660875 (Version 2)
Quarter: 2016Q3

REPORT INFORMATION
  Report Type: Spontaneous
  Country: US (occurrence: US)
  Receive Date: 20160817
  Receipt Date: 20160901
  Transmission Date: 20161109
  Serious: No
  Sender: FDA-Public Use
  Company Number: US-RELYPSA-RLY2016001304

PATIENT
  Age: 41 Year
  Sex: Male

DRUGS (9)
  1. TACROLIMUS. [Concomitant]
     Active Substance: TACROLIMUS
  2. VELTASSA [Suspect]
     Active Substance: PATIROMER
     Indication: HYPERKALAEMIA
     Dosage: 8.4 G, QD
     Route: 048
     Dates: start: 201604, end: 201607
  3. LANTUS [Concomitant]
     Active Substance: INSULIN GLARGINE
  4. ONE TOUCH [Concomitant]
  5. LABETALOL [Concomitant]
     Active Substance: LABETALOL\LABETALOL HYDROCHLORIDE
  6. INSULIN [Concomitant]
     Active Substance: INSULIN NOS
     Dosage: UNK
  7. FUROSEMIDE. [Concomitant]
     Active Substance: FUROSEMIDE
  8. OMEPRAZOLE. [Concomitant]
     Active Substance: OMEPRAZOLE
  9. MYCOPHENOLATE [Concomitant]
     Active Substance: MYCOPHENOLIC ACID

REACTIONS (2)
  - Memory impairment [Unknown]
  - Drug dose omission [Unknown]

NARRATIVE: CASE EVENT DATE: 201607
